FAERS Safety Report 6180301-X (Version None)
Quarter: 2009Q2

REPORT INFORMATION
  Report Type: 
  Country: None (occurrence: None)
  Receive Date: 20090506
  Receipt Date: 20090428
  Transmission Date: 20091009
  Serious: Yes (Death, Other)
  Sender: FDA-Public Use
  Company Number: GB-RANBAXY-2009RR-23771

PATIENT
  Age: 79 Year
  Sex: Female

DRUGS (13)
  1. SIMVASTATIN [Suspect]
     Indication: MYOCARDIAL ISCHAEMIA
     Dosage: 80 MG, UNK
     Route: 048
     Dates: start: 20050501, end: 20090113
  2. CLARITHROMYCIN [Suspect]
     Indication: BRONCHITIS
     Dosage: 500 MG, BID
     Route: 048
     Dates: start: 20081224, end: 20081231
  3. BISOPROLOL FUMARATE [Concomitant]
     Indication: MYOCARDIAL ISCHAEMIA
     Dosage: 10 MG, QD
  4. FERROUS SULFATE TAB [Concomitant]
     Indication: ANAEMIA
     Dosage: 200 MG, QD
  5. FUROSEMIDE [Concomitant]
     Dosage: 80 MG, QD
  6. NITROGLYCERIN [Concomitant]
     Dosage: 1 DF, PRN
  7. ISOTARD XL [Concomitant]
     Dosage: 60 MG, QD
  8. NICORANDIL [Concomitant]
     Dosage: 20 MG, BID
  9. OMEPRAZOLE [Concomitant]
     Indication: DYSPEPSIA
     Dosage: 20 MG, QD
  10. RAMIPRIL [Concomitant]
     Indication: MYOCARDIAL ISCHAEMIA
     Dosage: 10 MG, QD
  11. WARFARIN [Concomitant]
     Indication: ATRIAL FIBRILLATION
     Dosage: 1 MG, UNK
     Dates: start: 20080701
  12. WARFARIN [Concomitant]
     Dosage: 3 MG, UNK
  13. ZOPICLONE [Concomitant]
     Dosage: 3.75 MG, UNK

REACTIONS (5)
  - BLOOD CREATINE PHOSPHOKINASE INCREASED [None]
  - CEREBROVASCULAR ACCIDENT [None]
  - DRUG INTERACTION [None]
  - MYOSITIS [None]
  - SYNCOPE [None]
